FAERS Safety Report 18651887 (Version 2)
Quarter: 2020Q4

REPORT INFORMATION
  Report Type: Spontaneous
  Country: JP (occurrence: JP)
  Receive Date: 20201223
  Receipt Date: 20201225
  Transmission Date: 20210114
  Serious: Yes (Other)
  Sender: FDA-Public Use
  Company Number: JP-ROCHE-2659254

PATIENT
  Age: 24 Year
  Sex: Male

DRUGS (7)
  1. KYMRIAH [Suspect]
     Active Substance: TISAGENLECLEUCEL
     Indication: ACUTE LYMPHOCYTIC LEUKAEMIA
     Dosage: DOSAGE IS UNCERTAIN.
     Route: 041
     Dates: start: 20200706
  2. DOXORUBICIN HYDROCHLORIDE. [Concomitant]
     Active Substance: DOXORUBICIN HYDROCHLORIDE
     Dosage: DOSAGE IS UNCERTAIN.
     Route: 065
  3. VINCRISTINE SULFATE. [Concomitant]
     Active Substance: VINCRISTINE SULFATE
     Dosage: DOSAGE IS UNCERTAIN.
     Route: 065
     Dates: start: 202005
  4. ACTEMRA [Suspect]
     Active Substance: TOCILIZUMAB
     Indication: CYTOKINE RELEASE SYNDROME
     Dosage: DOSAGE IS UNCERTAIN.?MOST RECENT DOSE ON 11/JUL/2020
     Route: 065
     Dates: start: 20200710
  5. DEXAMETHASONE. [Concomitant]
     Active Substance: DEXAMETHASONE
     Dosage: DOSAGE IS UNCERTAIN.
     Route: 065
     Dates: start: 202005
  6. CYCLOPHOSPHAMIDE HYDRATE [Concomitant]
     Active Substance: CYCLOPHOSPHAMIDE
     Dosage: DOSAGE IS UNCERTAIN.
     Route: 065
     Dates: start: 202005
  7. PONATINIB HYDROCHLORIDE [Concomitant]
     Active Substance: PONATINIB
     Dosage: DOSAGE IS UNCERTAIN.
     Route: 065
     Dates: start: 202005

REACTIONS (1)
  - Neutrophil count decreased [Not Recovered/Not Resolved]
